FAERS Safety Report 21003617 (Version 1)
Quarter: 2022Q2

REPORT INFORMATION
  Report Type: Report from Study
  Country: CA (occurrence: CA)
  Receive Date: 20220624
  Receipt Date: 20220624
  Transmission Date: 20220721
  Serious: Yes (Other)
  Sender: FDA-Public Use
  Company Number: CA-PFIZER INC-PV202200003832

PATIENT
  Age: 6 Decade
  Sex: Male

DRUGS (2)
  1. METHOTREXATE SODIUM [Suspect]
     Active Substance: METHOTREXATE SODIUM
     Indication: Corneal dystrophy
     Dosage: 400 UG IN 0.1 ML, WEEKLY
     Route: 031
  2. METHOTREXATE SODIUM [Suspect]
     Active Substance: METHOTREXATE SODIUM
     Dosage: 800 UG IN 0.2 ML,IN A WEEK
     Route: 031

REACTIONS (2)
  - Retinal pigment epitheliopathy [Unknown]
  - Dysphotopsia [Unknown]
